FAERS Safety Report 6580549-6 (Version None)
Quarter: 2010Q1

REPORT INFORMATION
  Report Type: 
  Country: None (occurrence: None)
  Receive Date: 20100212
  Receipt Date: 20100203
  Transmission Date: 20100710
  Serious: Yes (Other)
  Sender: FDA-Public Use
  Company Number: US-PFIZER INC-2010016320

PATIENT
  Sex: Female
  Weight: 72.562 kg

DRUGS (1)
  1. LYRICA [Suspect]
     Indication: PAIN
     Dosage: FREQUENCY: 2X/DAY,
     Route: 048
     Dates: start: 20081201

REACTIONS (3)
  - BLISTER [None]
  - RASH GENERALISED [None]
  - THERMAL BURN [None]
